FAERS Safety Report 8486045-3 (Version None)
Quarter: 2012Q3

REPORT INFORMATION
  Report Type: 
  Country: None (occurrence: None)
  Receive Date: 20120703
  Receipt Date: 20120625
  Transmission Date: 20120928
  Serious: Yes (Hospitalization)
  Sender: FDA-Public Use
  Company Number: US-NOVOPROD-354507

PATIENT
  Age: 47 Year
  Sex: Male
  Weight: 54.422 kg

DRUGS (8)
  1. LEVEMIR [Suspect]
  2. WARFARIN SODIUM [Concomitant]
     Indication: HEART VALVE REPLACEMENT
  3. RANITIDINE [Concomitant]
     Indication: PRODUCT USED FOR UNKNOWN INDICATION
  4. LEVEMIR [Suspect]
     Indication: TYPE 2 DIABETES MELLITUS
     Dosage: 22 U, BID
     Route: 058
     Dates: start: 20110801
  5. NOVOLIN R [Concomitant]
     Indication: TYPE 2 DIABETES MELLITUS
     Dosage: SLIDING SCALE
     Route: 058
  6. LEVEMIR [Suspect]
  7. RAMIPRIL [Concomitant]
     Indication: HEART VALVE REPLACEMENT
  8. PLAVIX [Concomitant]
     Indication: HEART VALVE REPLACEMENT

REACTIONS (2)
  - ARRHYTHMIA [None]
  - BLOOD GLUCOSE INCREASED [None]
